FAERS Safety Report 5289271-X (Version None)
Quarter: 2007Q2

REPORT INFORMATION
  Report Type: 
  Country: None (occurrence: None)
  Receive Date: 20070403
  Receipt Date: 20070403
  Transmission Date: 20071010
  Serious: Yes (Life-Threatening, Hospitalization)
  Sender: FDA-Public Use
  Company Number: None

PATIENT
  Age: 4 Year
  Sex: Male
  Weight: 4.0824 kg

DRUGS (1)
  1. PHENOBARBITAL TAB [Suspect]
     Indication: GRAND MAL CONVULSION
     Dates: start: 19871101, end: 19871114

REACTIONS (4)
  - ASTHMA [None]
  - KERATOCONJUNCTIVITIS SICCA [None]
  - SCAR [None]
  - STEVENS-JOHNSON SYNDROME [None]
